FAERS Safety Report 16420308 (Version 1)
Quarter: 2019Q2

REPORT INFORMATION
  Report Type: Spontaneous
  Country: US (occurrence: US)
  Receive Date: 20190612
  Receipt Date: 20190612
  Transmission Date: 20190711
  Serious: No
  Sender: FDA-Public Use
  Company Number: US-TECHNOMED INC.-2068135

PATIENT
  Sex: Female

DRUGS (1)
  1. CATAPRES-TTS [Suspect]
     Active Substance: CLONIDINE
     Indication: CEREBRAL DISORDER
     Route: 050
     Dates: start: 2018

REACTIONS (1)
  - Off label use [Unknown]
